FAERS Safety Report 4974405-4 (Version None)
Quarter: 2006Q2

REPORT INFORMATION
  Report Type: 
  Country: None (occurrence: None)
  Receive Date: 20060410
  Receipt Date: 20060324
  Transmission Date: 20061013
  Serious: Yes (Death, Hospitalization)
  Sender: FDA-Public Use
  Company Number: A-US2005-11073

PATIENT
  Age: 45 Year
  Sex: Male

DRUGS (12)
  1. TRACLEER [Suspect]
     Indication: PULMONARY HYPERTENSION
     Dosage: SEE IMAGE
     Route: 048
     Dates: start: 20050506, end: 20050601
  2. TRACLEER [Suspect]
     Indication: PULMONARY HYPERTENSION
     Dosage: SEE IMAGE
     Route: 048
     Dates: start: 20050601
  3. ATAZANAVIR [Concomitant]
  4. TRAVUDA [Concomitant]
  5. SUSTIVA [Concomitant]
  6. K-DUR 10 [Concomitant]
  7. LASIX [Concomitant]
  8. LISINOPRIL [Concomitant]
  9. MARINOL [Concomitant]
  10. ANTIHEMOPHILIC FACTOR (HUMAN) [Concomitant]
  11. VITONIVIR [Concomitant]
  12. ANTIBIOTICS [Concomitant]

REACTIONS (19)
  - ANAEMIA [None]
  - BLEEDING VARICOSE VEIN [None]
  - CERUMEN IMPACTION [None]
  - DEHYDRATION [None]
  - DEPRESSION [None]
  - DISTURBANCE IN ATTENTION [None]
  - ENDOCARDITIS STAPHYLOCOCCAL [None]
  - EPISTAXIS [None]
  - HEADACHE [None]
  - HEPATIC FAILURE [None]
  - HEPATORENAL SYNDROME [None]
  - HYPOACUSIS [None]
  - HYPOKALAEMIA [None]
  - HYPONATRAEMIA [None]
  - MULTI-ORGAN FAILURE [None]
  - OEDEMA PERIPHERAL [None]
  - RENAL FAILURE ACUTE [None]
  - SCROTAL VARICOSE VEINS [None]
  - STAPHYLOCOCCAL BACTERAEMIA [None]
